FAERS Safety Report 11975745 (Version 2)
Quarter: 2016Q1

REPORT INFORMATION
  Report Type: Spontaneous
  Country: US (occurrence: US)
  Receive Date: 20160129
  Receipt Date: 20160129
  Transmission Date: 20160526
  Serious: No
  Sender: FDA-Public Use
  Company Number: US-HOSPIRA-2995742

PATIENT
  Age: 75 Year
  Sex: Male
  Weight: 85 kg

DRUGS (1)
  1. BUPIVACAINE HYDROCHLORIDE. [Suspect]
     Active Substance: BUPIVACAINE HYDROCHLORIDE
     Indication: SPINAL ANAESTHESIA
     Route: 024
     Dates: start: 20150725, end: 20150725

REACTIONS (1)
  - Drug ineffective [Recovered/Resolved]

NARRATIVE: CASE EVENT DATE: 20150725
